FAERS Safety Report 9263371 (Version 1)
Quarter: 2013Q2

REPORT INFORMATION
  Report Type: Spontaneous
  Country: US (occurrence: US)
  Receive Date: 20130430
  Receipt Date: 20130430
  Transmission Date: 20140414
  Serious: No
  Sender: FDA-Public Use
  Company Number: US-ABBOTT-12P-163-0979219-00

PATIENT
  Sex: Female
  Weight: 77.18 kg

DRUGS (4)
  1. CREON [Suspect]
     Indication: PANCREATIC INSUFFICIENCY
     Dosage: DOES VARIES FROM 2-3 CAPSULES WITH EACH MEAL
     Route: 048
     Dates: start: 1978, end: 2011
  2. CREON [Suspect]
     Dosage: ONE CAPSULE WITH EACH MEAL
     Dates: start: 2011
  3. SPIRONOLACTONE [Concomitant]
     Indication: HYPERTENSION
  4. ENZYME PREPARATIONS [Concomitant]
     Indication: PANCREATIC INSUFFICIENCY

REACTIONS (8)
  - Infrequent bowel movements [Not Recovered/Not Resolved]
  - Constipation [Not Recovered/Not Resolved]
  - Abdominal pain upper [Not Recovered/Not Resolved]
  - Abnormal faeces [Not Recovered/Not Resolved]
  - Faeces hard [Not Recovered/Not Resolved]
  - Abdominal distension [Not Recovered/Not Resolved]
  - Flatulence [Not Recovered/Not Resolved]
  - Gastric mucosa erythema [Not Recovered/Not Resolved]
